FAERS Safety Report 21856251 (Version 1)
Quarter: 2023Q1

REPORT INFORMATION
  Report Type: Report from Study
  Country: FR (occurrence: FR)
  Receive Date: 20230112
  Receipt Date: 20230112
  Transmission Date: 20230417
  Serious: Yes (Other)
  Sender: FDA-Public Use
  Company Number: FR-GILEAD-2022-0604555

PATIENT
  Sex: Female
  Weight: 60 kg

DRUGS (3)
  1. SACITUZUMAB GOVITECAN-HZIY [Suspect]
     Active Substance: SACITUZUMAB GOVITECAN-HZIY
     Indication: Triple negative breast cancer
     Dosage: 10 MG/KG, C1D1,D8
     Route: 042
     Dates: start: 20220818, end: 20220825
  2. SACITUZUMAB GOVITECAN-HZIY [Suspect]
     Active Substance: SACITUZUMAB GOVITECAN-HZIY
     Dosage: 10 MG/KG, C2D1,D8
     Route: 042
     Dates: start: 20220908, end: 20220915
  3. SACITUZUMAB GOVITECAN-HZIY [Suspect]
     Active Substance: SACITUZUMAB GOVITECAN-HZIY
     Dosage: 10 MG/KG, C3D1,D8
     Route: 042
     Dates: start: 20220929, end: 20221013

REACTIONS (4)
  - Leukopenia [Recovered/Resolved]
  - Lymphopenia [Not Recovered/Not Resolved]
  - Disease progression [Unknown]
  - Anaemia [Not Recovered/Not Resolved]
